FAERS Safety Report 10082847 (Version 2)
Quarter: 2014Q2

REPORT INFORMATION
  Report Type: Report from Study
  Country: AU (occurrence: AU)
  Receive Date: 20140416
  Receipt Date: 20140428
  Transmission Date: 20141212
  Serious: Yes (Hospitalization, Other)
  Sender: FDA-Public Use
  Company Number: PHHY2014AU046271

PATIENT
  Age: 78 Year
  Sex: Female

DRUGS (7)
  1. ACLASTA [Suspect]
     Dosage: 5 MG, UNK
     Route: 042
     Dates: start: 20090421
  2. ACLASTA [Suspect]
     Dosage: 5 MG, UNK
     Route: 042
     Dates: start: 20100319
  3. ACLASTA [Suspect]
     Dosage: 5 MG, UNK
     Route: 042
     Dates: start: 20110411
  4. ACLASTA [Suspect]
     Dosage: 5 MG, UNK
     Route: 042
     Dates: start: 20120402
  5. CLOPIDOGREL [Concomitant]
     Dosage: UNK UKN, UNK
  6. RAMIPRIL [Concomitant]
     Dosage: UNK UKN, UNK
  7. METOPROLOL [Concomitant]
     Dosage: UNK

REACTIONS (6)
  - Transient ischaemic attack [Recovering/Resolving]
  - Hypoaesthesia [Recovered/Resolved]
  - Aortic stenosis [Recovering/Resolving]
  - Cardiac murmur [Recovered/Resolved]
  - Eye pain [Recovered/Resolved]
  - Inappropriate schedule of drug administration [Recovered/Resolved]
